FAERS Safety Report 5135410-0 (Version None)
Quarter: 2006Q4

REPORT INFORMATION
  Report Type: 
  Country: None (occurrence: None)
  Receive Date: 20061026
  Receipt Date: 20061024
  Transmission Date: 20070319
  Serious: Yes (Hospitalization)
  Sender: FDA-Public Use
  Company Number: US-GLAXOSMITHKLINE-A0624761A

PATIENT
  Age: 76 Year
  Sex: Male

DRUGS (4)
  1. COREG [Suspect]
     Indication: CARDIOMYOPATHY
     Dosage: 25MG TWICE PER DAY
     Route: 048
  2. DIGOXIN [Concomitant]
  3. AMITRIPTYLINE HCL [Concomitant]
  4. PROZAC [Concomitant]

REACTIONS (7)
  - BONE MARROW FAILURE [None]
  - CYST [None]
  - FATIGUE [None]
  - HAEMATURIA [None]
  - HAEMORRHAGIC DISORDER [None]
  - PLATELET COUNT DECREASED [None]
  - WEIGHT DECREASED [None]
